FAERS Safety Report 9408686 (Version 3)
Quarter: 2014Q1

REPORT INFORMATION
  Report Type: Spontaneous
  Country: CA (occurrence: CA)
  Receive Date: 20130712
  Receipt Date: 20140320
  Transmission Date: 20141002
  Serious: Yes (Other)
  Sender: FDA-Public Use
  Company Number: CA-PFIZER INC-2012020797

PATIENT
  Sex: Female

DRUGS (1)
  1. ADVIL LIQUI-GELS [Suspect]
     Indication: HEADACHE
     Dosage: 400 MG (2 X 200 MG), TWICE WEEKLY
     Route: 048
     Dates: start: 20111130

REACTIONS (10)
  - Foreign body [Recovered/Resolved]
  - Throat irritation [Recovering/Resolving]
  - Cough [Recovering/Resolving]
  - Dyspnoea [Recovered/Resolved]
  - Insomnia [Recovered/Resolved]
  - Stress [Recovered/Resolved]
  - Weight decreased [Recovered/Resolved]
  - Increased upper airway secretion [Recovered/Resolved]
  - Vocal cord disorder [Recovered/Resolved]
  - Tonsillar disorder [Recovered/Resolved]
